FAERS Safety Report 19211148 (Version 4)
Quarter: 2022Q3

REPORT INFORMATION
  Report Type: Report from Study
  Country: IN (occurrence: IN)
  Receive Date: 20210504
  Receipt Date: 20220630
  Transmission Date: 20221026
  Serious: Yes (Death, Hospitalization, Other)
  Sender: FDA-Public Use
  Company Number: NVSC2021IN092377

PATIENT
  Age: 70 Year
  Sex: Female

DRUGS (3)
  1. RIBOCICLIB [Suspect]
     Active Substance: RIBOCICLIB
     Indication: Breast cancer metastatic
     Dosage: 600 MG, QD
     Route: 065
     Dates: start: 20190612, end: 20210410
  2. RIBOCICLIB [Suspect]
     Active Substance: RIBOCICLIB
     Dosage: 600 MG, QD
     Route: 065
     Dates: start: 20210426, end: 20210620
  3. RIBOCICLIB [Suspect]
     Active Substance: RIBOCICLIB
     Dosage: 600 MG, QD
     Route: 065
     Dates: start: 20210709, end: 20211004

REACTIONS (14)
  - COVID-19 pneumonia [Fatal]
  - Cerebral thrombosis [Recovering/Resolving]
  - Full blood count abnormal [Not Recovered/Not Resolved]
  - Blood electrolytes decreased [Recovering/Resolving]
  - Urinary tract infection [Unknown]
  - Cerebrovascular accident [Unknown]
  - Mental impairment [Unknown]
  - Asthenia [Not Recovered/Not Resolved]
  - Hypertension [Unknown]
  - Lymphocele [Unknown]
  - Swelling [Unknown]
  - Pain in extremity [Unknown]
  - Chromaturia [Unknown]
  - Dizziness [Unknown]

NARRATIVE: CASE EVENT DATE: 20210405
